FAERS Safety Report 17551953 (Version 4)
Quarter: 2020Q2

REPORT INFORMATION
  Report Type: Report from Study
  Country: US (occurrence: US)
  Receive Date: 20200317
  Receipt Date: 20200622
  Transmission Date: 20200713
  Serious: Yes (Hospitalization, Other)
  Sender: FDA-Public Use
  Company Number: US-BIOGEN-2020BI00849186

PATIENT
  Age: 63 Year
  Sex: Female

DRUGS (4)
  1. LOVENOX [Concomitant]
     Active Substance: ENOXAPARIN SODIUM
     Indication: PULMONARY EMBOLISM
     Route: 065
     Dates: start: 20200306
  2. TYSABRI [Suspect]
     Active Substance: NATALIZUMAB
     Dosage: 3 INFUSIONS
     Route: 042
     Dates: start: 20191202, end: 20200227
  3. PRADAXA [Concomitant]
     Active Substance: DABIGATRAN ETEXILATE MESYLATE
     Indication: PULMONARY EMBOLISM
     Route: 065
  4. TYSABRI [Suspect]
     Active Substance: NATALIZUMAB
     Indication: MULTIPLE SCLEROSIS
     Dosage: 146 INFUSIONS
     Route: 042
     Dates: start: 20080325, end: 20191121

REACTIONS (8)
  - Progressive multifocal leukoencephalopathy [Not Recovered/Not Resolved]
  - Stress [Unknown]
  - Head injury [Not Recovered/Not Resolved]
  - Fall [Recovered/Resolved]
  - Immune reconstitution inflammatory syndrome [Unknown]
  - Prescribed underdose [Recovered/Resolved]
  - Ankle fracture [Not Recovered/Not Resolved]
  - Multiple sclerosis relapse [Unknown]

NARRATIVE: CASE EVENT DATE: 20191202
